FAERS Safety Report 10630082 (Version 1)
Quarter: 2014Q4

REPORT INFORMATION
  Report Type: Spontaneous
  Country: US (occurrence: US)
  Receive Date: 20141205
  Receipt Date: 20141205
  Transmission Date: 20150529
  Serious: No
  Sender: FDA-Public Use
  Company Number: US-BRISTOL-MYERS SQUIBB COMPANY-21284666

PATIENT
  Age: 36 Year
  Sex: Male
  Weight: 107.48 kg

DRUGS (1)
  1. SPRYCEL [Suspect]
     Active Substance: DASATINIB
     Indication: CHRONIC MYELOID LEUKAEMIA
     Dosage: 100MG: LAST WEEK, AUG14
     Route: 048
     Dates: start: 201401

REACTIONS (1)
  - Drug effect incomplete [Unknown]
